FAERS Safety Report 23064462 (Version 3)
Quarter: 2023Q4

REPORT INFORMATION
  Report Type: Spontaneous
  Country: US (occurrence: US)
  Receive Date: 20231013
  Receipt Date: 20231120
  Transmission Date: 20240110
  Serious: No
  Sender: FDA-Public Use
  Company Number: US-PFIZER INC-202300305870

PATIENT
  Age: 37 Year
  Sex: Female

DRUGS (1)
  1. DEPO-PROVERA [Suspect]
     Active Substance: MEDROXYPROGESTERONE ACETATE
     Indication: Contraception
     Dosage: INJECT ENTIRE SYRINGE UNDER THE SKIN EVERY 84 DAYS
     Dates: start: 20210308

REACTIONS (2)
  - Incorrect dose administered [Unknown]
  - Device occlusion [Unknown]

NARRATIVE: CASE EVENT DATE: 20230901
